FAERS Safety Report 6522082-3 (Version None)
Quarter: 2009Q4

REPORT INFORMATION
  Report Type: 
  Country: None (occurrence: None)
  Receive Date: 20091230
  Receipt Date: 20091222
  Transmission Date: 20100525
  Serious: Yes (Hospitalization)
  Sender: FDA-Public Use
  Company Number: PHHO2009BE14628

PATIENT
  Sex: Male
  Weight: 92 kg

DRUGS (3)
  1. CERTICAN [Suspect]
     Indication: LIVER TRANSPLANT
     Dosage: 4.5 MG, BID
     Route: 048
     Dates: start: 20090814, end: 20091211
  2. TACROLIMUS [Suspect]
     Indication: LIVER TRANSPLANT
     Route: 048
  3. MEDROL [Concomitant]
     Dosage: UNK
     Dates: end: 20091211

REACTIONS (8)
  - BLOOD CREATINE PHOSPHOKINASE INCREASED [None]
  - CHOLANGITIS [None]
  - DYSPNOEA [None]
  - ENDOSCOPIC RETROGRADE CHOLANGIOPANCREATOGRAPHY [None]
  - LIVER FUNCTION TEST ABNORMAL [None]
  - LIVER TRANSPLANT REJECTION [None]
  - LUNG INFILTRATION [None]
  - PYREXIA [None]
